FAERS Safety Report 17295305 (Version 2)
Quarter: 2020Q2

REPORT INFORMATION
  Report Type: Report from Study
  Country: US (occurrence: US)
  Receive Date: 20200121
  Receipt Date: 20200429
  Transmission Date: 20200713
  Serious: Yes (Death)
  Sender: FDA-Public Use
  Company Number: US-PHARMING-PHAUS2020000008

PATIENT

DRUGS (1)
  1. RUCONEST [Suspect]
     Active Substance: HUMAN C1-ESTERASE INHIBITOR
     Indication: HEREDITARY ANGIOEDEMA
     Dosage: 2100 IU INTERNATIONAL UNIT(S), AS NEEDED
     Route: 042
     Dates: start: 20151102

REACTIONS (2)
  - Mast cell activation syndrome [Fatal]
  - Hereditary angioedema [Fatal]

NARRATIVE: CASE EVENT DATE: 20191218
